FAERS Safety Report 5387793-4 (Version None)
Quarter: 2007Q3

REPORT INFORMATION
  Report Type: 
  Country: None (occurrence: None)
  Receive Date: 20070712
  Receipt Date: 20070704
  Transmission Date: 20080115
  Serious: Yes (Life-Threatening)
  Sender: FDA-Public Use
  Company Number: 2007AL002693

PATIENT
  Age: 47 Year
  Sex: Male

DRUGS (5)
  1. NAPROXEN [Suspect]
     Dosage: 500 MG; QD; PO
     Route: 048
     Dates: start: 20061001, end: 20070101
  2. PREGABALIN [Concomitant]
  3. NORTRIPTYLINE HCL [Concomitant]
  4. BUPRENORPHINE HCL [Concomitant]
  5. TRAMADOL HCL [Concomitant]

REACTIONS (4)
  - COLITIS ISCHAEMIC [None]
  - LARGE INTESTINE PERFORATION [None]
  - PERITONITIS [None]
  - SEPSIS [None]
